FAERS Safety Report 24765908 (Version 2)
Quarter: 2024Q4

REPORT INFORMATION
  Report Type: Spontaneous
  Country: TR (occurrence: TR)
  Receive Date: 20241223
  Receipt Date: 20241227
  Transmission Date: 20250115
  Serious: Yes (Other)
  Sender: MYLAN
  Company Number: TR-MYLANLABS-2024M1114539

PATIENT
  Age: 25 Year
  Sex: Male

DRUGS (5)
  1. LYRICA [Suspect]
     Active Substance: PREGABALIN
     Indication: Back pain
     Dosage: 300 MILLIGRAM, ( 300  MG ONCE IN TWO DAY OR DAILY FOR 18 MONTHS.)
     Route: 065
  2. LYRICA [Suspect]
     Active Substance: PREGABALIN
     Indication: Back pain
     Dosage: 4500 MILLIGRAM, QD
     Route: 065
  3. LYRICA [Suspect]
     Active Substance: PREGABALIN
     Dosage: 1800 MILLIGRAM, QD
     Route: 065
  4. LYRICA [Suspect]
     Active Substance: PREGABALIN
     Dosage: 600 MILLIGRAM (TAPER THE DOSAGE BY 150 MG EACH WEEK)
     Route: 065
  5. LUSTRAL [Suspect]
     Active Substance: SERTRALINE HYDROCHLORIDE
     Indication: Product used for unknown indication
     Dosage: 50 MILLIGRAM, QD
     Route: 065

REACTIONS (5)
  - Sedation [Unknown]
  - Drug abuse [Unknown]
  - Drug dependence [Unknown]
  - Intentional product misuse [Unknown]
  - Overdose [Unknown]
